FAERS Safety Report 8681765 (Version 4)
Quarter: 2013Q1

REPORT INFORMATION
  Report Type: Report from Study
  Country: NO (occurrence: NO)
  Receive Date: 20120725
  Receipt Date: 20130215
  Transmission Date: 20140127
  Serious: Yes (Other)
  Sender: FDA-Public Use
  Company Number: NO-PFIZER INC-2012173779

PATIENT
  Age: 24 Year
  Sex: Male

DRUGS (8)
  1. DOXORUBICIN HCL [Suspect]
     Indication: HODGKIN^S DISEASE
     Dosage: 25 MG/M2 (STANDARD) OR 35 MG/M2 (ESCALATED) MG/M2, ON DAY1 EVERY 22DAYS
     Route: 042
  2. VINCRISTINE [Suspect]
     Indication: HODGKIN^S DISEASE
     Dosage: 1.4 MG/M2, ON DAY 8 EVERY 22 DAYS
     Route: 042
  3. ETOPOSIDE [Suspect]
     Indication: HODGKIN^S DISEASE
     Dosage: 100 MG/M2  (STANDARD) OR 200 MG/M2 (ESCALATED) MG/M2, ON  DAY1-3 EVERY 22DAYS
     Route: 042
  4. PREDNISOLONE [Suspect]
     Indication: HODGKIN^S DISEASE
     Dosage: 40 MG/M2 DAY1-14 EVERY 22DAYS
     Route: 048
  5. BLEOMYCIN [Suspect]
     Indication: HODGKIN^S DISEASE
     Dosage: 10 000IU, ON DAY 8 EVERY 22DAYS
     Route: 042
  6. PROCARBAZINE [Suspect]
     Indication: HODGKIN^S DISEASE
     Dosage: 100 MG/M2, ON DAY 1-7 EVERY 22D
     Route: 048
  7. CYCLOPHOSPHAMIDE [Suspect]
     Indication: HODGKIN^S DISEASE
     Dosage: 650 MG/M2  (STANDARD) OR 1250 MG/M2 (ESCALATED) MG/M2 ON DAY1 EVERY 22D
     Route: 042
  8. SULFAMETHOXAZOLE/TRIMETHOPRIM [Concomitant]
     Indication: ANTIFUNGAL PROPHYLAXIS
     Dosage: UNK
     Route: 065

REACTIONS (1)
  - Osteonecrosis [Unknown]
